FAERS Safety Report 5219786-1 (Version None)
Quarter: 2007Q1

REPORT INFORMATION
  Report Type: 
  Country: None (occurrence: None)
  Receive Date: 20070125
  Receipt Date: 20070117
  Transmission Date: 20070707
  Serious: Yes (Hospitalization)
  Sender: FDA-Public Use
  Company Number: JP-PFIZER INC-2007003362

PATIENT
  Age: 81 Year
  Sex: Male

DRUGS (2)
  1. DETRUSITOL SR [Suspect]
     Dosage: DAILY DOSE:2MG
     Route: 048
  2. ANTI-DIABETICS [Concomitant]

REACTIONS (1)
  - HYPOGLYCAEMIA [None]
